FAERS Safety Report 11330270 (Version 5)
Quarter: 2016Q1

REPORT INFORMATION
  Report Type: Report from Study
  Country: CA (occurrence: CA)
  Receive Date: 20150803
  Receipt Date: 20160126
  Transmission Date: 20160525
  Serious: Yes (Death, Hospitalization, Other)
  Sender: FDA-Public Use
  Company Number: CA-ROCHE-ITM201504IM013023

PATIENT
  Age: 57 Year
  Sex: Female

DRUGS (23)
  1. ELAVIL [Concomitant]
     Active Substance: AMITRIPTYLINE HYDROCHLORIDE
  2. ESBRIET [Suspect]
     Active Substance: PIRFENIDONE
     Indication: IDIOPATHIC PULMONARY FIBROSIS
     Route: 048
     Dates: start: 20150327
  3. SYMBICORT [Concomitant]
     Active Substance: BUDESONIDE\FORMOTEROL FUMARATE DIHYDRATE
  4. TECTA [Concomitant]
     Active Substance: PANTOPRAZOLE MAGNESIUM
  5. ATORVASTATIN [Concomitant]
     Active Substance: ATORVASTATIN
  6. ESBRIET [Suspect]
     Active Substance: PIRFENIDONE
     Route: 048
     Dates: start: 20150607
  7. NAPROXEN. [Concomitant]
     Active Substance: NAPROXEN
  8. METFORMIN [Concomitant]
     Active Substance: METFORMIN HYDROCHLORIDE
  9. PREGABALIN. [Concomitant]
     Active Substance: PREGABALIN
  10. CLONAZEPAM. [Concomitant]
     Active Substance: CLONAZEPAM
  11. OLANZAPINE. [Concomitant]
     Active Substance: OLANZAPINE
  12. ESBRIET [Suspect]
     Active Substance: PIRFENIDONE
     Route: 048
     Dates: start: 20150410, end: 20150630
  13. SEEBRI [Concomitant]
     Active Substance: GLYCOPYRRONIUM
  14. OXYCOCET [Concomitant]
     Active Substance: ACETAMINOPHEN\OXYCODONE HYDROCHLORIDE
     Dosage: AS REQUIRED
     Route: 065
  15. LEVOCARB [Concomitant]
     Active Substance: CARBIDOPA\LEVODOPA
  16. QUETIAPINE [Concomitant]
     Active Substance: QUETIAPINE
  17. VENLAFAXINE [Concomitant]
     Active Substance: VENLAFAXINE HYDROCHLORIDE
  18. VENTOLIN [Concomitant]
     Active Substance: ALBUTEROL SULFATE
  19. OXYGEN. [Concomitant]
     Active Substance: OXYGEN
  20. PREDNISONE. [Concomitant]
     Active Substance: PREDNISONE
  21. ESBRIET [Suspect]
     Active Substance: PIRFENIDONE
     Route: 048
     Dates: start: 20150403
  22. CLAVULIN [Concomitant]
     Active Substance: AMOXICILLIN\CLAVULANIC ACID
  23. N-ACETYLCYSTEINE [Concomitant]
     Active Substance: ACETYLCYSTEINE

REACTIONS (9)
  - Blood glucose decreased [Unknown]
  - Nausea [Unknown]
  - Blood glucose increased [Recovered/Resolved]
  - Dizziness [Unknown]
  - Confusional state [Unknown]
  - Drug dose omission [Unknown]
  - Blood pressure decreased [Recovered/Resolved]
  - Death [Fatal]
  - Accidental overdose [Unknown]

NARRATIVE: CASE EVENT DATE: 20150629
